FAERS Safety Report 8191110-4 (Version None)
Quarter: 2012Q1

REPORT INFORMATION
  Report Type: 
  Country: None (occurrence: None)
  Receive Date: 20120307
  Receipt Date: 20120229
  Transmission Date: 20120608
  Serious: Yes (Death, Hospitalization)
  Sender: FDA-Public Use
  Company Number: US-GLAXOSMITHKLINE-A0968699A

PATIENT
  Age: 62 Year
  Sex: Female
  Weight: 68.9 kg

DRUGS (18)
  1. LYRICA [Concomitant]
     Dosage: 75MG TWICE PER DAY
  2. TRAVATAN [Concomitant]
  3. ASPIRIN [Concomitant]
     Dosage: 81MG PER DAY
  4. ONDANSETRON [Concomitant]
     Dosage: 4MG AS REQUIRED
  5. REVATIO [Concomitant]
     Dosage: 60MG THREE TIMES PER DAY
  6. SPIRONOLACTONE [Concomitant]
     Dosage: 25MG PER DAY
  7. COUMADIN [Concomitant]
  8. METHIMAZOLE [Concomitant]
     Dosage: 5MG PER DAY
  9. CREON [Concomitant]
     Dosage: 24000UNIT THREE TIMES PER DAY
  10. KLOR-CON [Concomitant]
     Dosage: 1TAB PER DAY
  11. REGLAN [Concomitant]
     Dosage: 10MG THREE TIMES PER DAY
  12. SINGULAIR [Concomitant]
     Dosage: 10MG PER DAY
  13. FLOLAN [Suspect]
     Indication: PULMONARY ARTERIAL HYPERTENSION
     Dosage: 30.24NGKM SEE DOSAGE TEXT
     Route: 042
     Dates: start: 20070501
  14. LANTUS [Concomitant]
     Dosage: 10UNIT AT NIGHT
  15. LASIX [Concomitant]
     Dosage: 80MG PER DAY
  16. OMEPRAZOLE [Concomitant]
     Dosage: 20MG PER DAY
  17. MULTAQ [Concomitant]
     Dosage: 400MG TWICE PER DAY
  18. SIMVASTATIN [Concomitant]
     Dosage: 20MG PER DAY

REACTIONS (3)
  - RENAL FAILURE [None]
  - DEATH [None]
  - DYSPNOEA [None]
